FAERS Safety Report 7269836-6 (Version None)
Quarter: 2010Q4

REPORT INFORMATION
  Report Type: 
  Country: None (occurrence: None)
  Receive Date: 20101130
  Receipt Date: 20091203
  Transmission Date: 20110411
  Serious: Yes (Hospitalization, Other)
  Sender: FDA-Public Use
  Company Number: 2009SP040180

PATIENT
  Age: 27 Year
  Sex: Female
  Weight: 90.7194 kg

DRUGS (2)
  1. NUVARING [Suspect]
     Indication: ENDOMETRIOSIS
     Dosage: VAG
     Route: 067
     Dates: start: 20060301, end: 20060501
  2. NUVARING [Suspect]
     Indication: OVARIAN CYST
     Dosage: VAG
     Route: 067
     Dates: start: 20060301, end: 20060501

REACTIONS (2)
  - HAEMOGLOBIN INCREASED [None]
  - PULMONARY EMBOLISM [None]
